FAERS Safety Report 7752099-2 (Version None)
Quarter: 2011Q3

REPORT INFORMATION
  Report Type: 
  Country: None (occurrence: None)
  Receive Date: 20110913
  Receipt Date: 20110831
  Transmission Date: 20111222
  Serious: Yes (Disabling, Other)
  Sender: FDA-Public Use
  Company Number: 2011SP041207

PATIENT
  Age: 11 Year
  Sex: Female
  Weight: 56 kg

DRUGS (4)
  1. DOXORUBICIN HCL [Suspect]
     Indication: BONE SARCOMA
     Dosage: 37.5 MG/M2;QD; IV
     Route: 042
     Dates: start: 20101014
  2. DOXORUBICIN HCL [Suspect]
     Indication: BONE SARCOMA
     Dosage: 37.5 MG/M2;QD; IV
     Route: 042
     Dates: start: 20110525, end: 20110526
  3. PEG-INTRON [Suspect]
     Indication: BONE SARCOMA
     Dosage: 0.5 MCG/ KG; QW; SC;QW;SC
     Route: 058
     Dates: start: 20110801
  4. PEG-INTRON [Suspect]
     Indication: BONE SARCOMA
     Dosage: 0.5 MCG/ KG; QW; SC;QW;SC
     Route: 058
     Dates: start: 20110815

REACTIONS (4)
  - NEUTROPENIA [None]
  - PAIN IN EXTREMITY [None]
  - STAPHYLOCOCCAL SCALDED SKIN SYNDROME [None]
  - CARDIAC FAILURE [None]
